FAERS Safety Report 9787284 (Version 1)
Quarter: 2013Q4

REPORT INFORMATION
  Report Type: Spontaneous
  Country: US (occurrence: US)
  Receive Date: 20131230
  Receipt Date: 20131230
  Transmission Date: 20140711
  Serious: Yes (Other)
  Sender: FDA-Public Use
  Company Number: US-BEH-2013039645

PATIENT
  Sex: Male

DRUGS (1)
  1. HIZENTRA [Suspect]

REACTIONS (5)
  - Respiratory tract infection [Unknown]
  - Pallor [Unknown]
  - Malaise [Unknown]
  - Dizziness [Unknown]
  - Pyrexia [Unknown]
